FAERS Safety Report 8600594-6 (Version None)
Quarter: 2012Q3

REPORT INFORMATION
  Report Type: 
  Country: None (occurrence: None)
  Receive Date: 20120817
  Receipt Date: 20120815
  Transmission Date: 20120928
  Serious: Yes (Death, Hospitalization, Other)
  Sender: FDA-Public Use
  Company Number: US-ELI_LILLY_AND_COMPANY-US201207005731

PATIENT
  Age: 84 Year
  Sex: Male
  Weight: 99.773 kg

DRUGS (7)
  1. METFORMIN HCL [Concomitant]
  2. LISINOPRIL [Concomitant]
  3. ASPIRIN [Concomitant]
     Dosage: LOW DOSE
  4. EFFIENT [Suspect]
     Indication: STENT PLACEMENT
     Dosage: 10 MG, QD
     Dates: start: 20120101, end: 20120401
  5. CARVEDILOL [Concomitant]
  6. TAMSULOSIN HCL [Concomitant]
     Dosage: 0.4 MG, UNK
  7. SIMVASTATIN [Concomitant]
     Dosage: 40 MG, UNK

REACTIONS (6)
  - DEATH [None]
  - RECTAL HAEMORRHAGE [None]
  - MUSCULOSKELETAL PAIN [None]
  - CHEST PAIN [None]
  - PALLOR [None]
  - VOMITING [None]
